FAERS Safety Report 5318853-1 (Version None)
Quarter: 2007Q1

REPORT INFORMATION
  Report Type: 
  Country: None (occurrence: None)
  Receive Date: 20070201
  Receipt Date: 20061214
  Transmission Date: 20070707
  Serious: No
  Sender: FDA-Public Use
  Company Number: VNL_0341_2006

PATIENT
  Age: 77 Year
  Sex: Female
  Weight: 54.4316 kg

DRUGS (2)
  1. APOKYN [Suspect]
     Indication: PARKINSON'S DISEASE
     Dosage: 0.2 ML ONCE SC
     Route: 058
     Dates: start: 20061201, end: 20061201
  2. APOKYN [Suspect]
     Indication: PARKINSON'S DISEASE
     Dosage: 0.4 ML ONCE SC
     Route: 058
     Dates: start: 20061201, end: 20061201

REACTIONS (2)
  - LETHARGY [None]
  - SOMNOLENCE [None]
